FAERS Safety Report 7721057-6 (Version None)
Quarter: 2011Q3

REPORT INFORMATION
  Report Type: 
  Country: None (occurrence: None)
  Receive Date: 20110831
  Receipt Date: 20100819
  Transmission Date: 20111222
  Serious: No
  Sender: FDA-Public Use
  Company Number: US-BAYER-201031560NA

PATIENT
  Sex: Female

DRUGS (1)
  1. MIRENA [Suspect]
     Indication: PRODUCT USED FOR UNKNOWN INDICATION
     Dosage: FREQUENCY; CONTINUOUS
     Route: 015
     Dates: start: 20100101

REACTIONS (6)
  - POST PROCEDURAL HAEMORRHAGE [None]
  - AMENORRHOEA [None]
  - WEIGHT INCREASED [None]
  - FATIGUE [None]
  - INCREASED APPETITE [None]
  - VAGINAL HAEMORRHAGE [None]
